FAERS Safety Report 5830470-3 (Version None)
Quarter: 2008Q3

REPORT INFORMATION
  Report Type: 
  Country: None (occurrence: None)
  Receive Date: 20080801
  Receipt Date: 20070601
  Transmission Date: 20090109
  Serious: No
  Sender: FDA-Public Use
  Company Number: US-BRISTOL-MYERS SQUIBB COMPANY-13799986

PATIENT
  Age: 53 Year
  Sex: Female
  Weight: 70 kg

DRUGS (4)
  1. COUMADIN [Suspect]
     Indication: ATRIAL FIBRILLATION
     Dates: start: 20070530
  2. ASPIRIN [Concomitant]
  3. CYMBALTA [Concomitant]
  4. PROTONIX [Concomitant]

REACTIONS (2)
  - HEADACHE [None]
  - OROPHARYNGEAL PAIN [None]
